FAERS Safety Report 4592489-2 (Version None)
Quarter: 2005Q1

REPORT INFORMATION
  Report Type: 
  Country: None (occurrence: None)
  Receive Date: 20050222
  Receipt Date: 20050207
  Transmission Date: 20050727
  Serious: Yes (Other)
  Sender: FDA-Public Use
  Company Number: S04-USA-00299-01

PATIENT
  Age: 65 Year
  Sex: Female

DRUGS (10)
  1. CELEXA [Suspect]
     Indication: DEPRESSION
     Dosage: 20 MG QD PO
     Route: 048
     Dates: start: 20031126, end: 20040112
  2. CELEXA [Suspect]
     Indication: DEPRESSION
     Dosage: 30 MG QD PO
     Route: 048
     Dates: start: 20040113, end: 20040127
  3. ZESTRIL [Concomitant]
  4. ZOCOR [Concomitant]
  5. SYNTHROID [Concomitant]
  6. PREMARIN [Concomitant]
  7. TAGAMET [Concomitant]
  8. ATIVAN [Concomitant]
  9. PRINIVIL [Concomitant]
  10. PAXIL [Concomitant]

REACTIONS (25)
  - ANGIOTENSIN CONVERTING ENZYME DECREASED [None]
  - ANION GAP INCREASED [None]
  - ARCUS LIPOIDES [None]
  - ASTHENIA [None]
  - BLINDNESS UNILATERAL [None]
  - BURNING SENSATION [None]
  - CATARACT [None]
  - DIARRHOEA [None]
  - DRY MOUTH [None]
  - FALL [None]
  - FOOT FRACTURE [None]
  - HALLUCINATION [None]
  - HYPERHIDROSIS [None]
  - INSOMNIA [None]
  - NAUSEA [None]
  - NUCLEAR MAGNETIC RESONANCE IMAGING BRAIN ABNORMAL [None]
  - OPTIC ATROPHY [None]
  - OPTIC ISCHAEMIC NEUROPATHY [None]
  - OPTIC NEURITIS [None]
  - OPTIC NEUROPATHY [None]
  - RETINAL HAEMORRHAGE [None]
  - STRESS [None]
  - TOTAL CHOLESTEROL/HDL RATIO INCREASED [None]
  - TREMOR [None]
  - WEIGHT DECREASED [None]
